FAERS Safety Report 24767953 (Version 1)
Quarter: 2024Q4

REPORT INFORMATION
  Report Type: Spontaneous
  Country: US (occurrence: None)
  Receive Date: 20241223
  Receipt Date: 20241223
  Transmission Date: 20250114
  Serious: Yes (Disabling, Other)
  Sender: Public
  Company Number: None

PATIENT
  Age: 54 Year
  Sex: Female
  Weight: 59.4 kg

DRUGS (17)
  1. LEVOFLOXACIN [Suspect]
     Active Substance: LEVOFLOXACIN
     Indication: Respiratory tract infection
     Dosage: OTHER QUANTITY : 1 CAPSULE(S);?FREQUENCY : TWICE A DAY;?
     Route: 048
     Dates: start: 20150619, end: 20150628
  2. LEVOFLOXACIN [Suspect]
     Active Substance: LEVOFLOXACIN
     Indication: Pneumonia
  3. ESTRADIOL [Concomitant]
     Active Substance: ESTRADIOL
  4. CLONAZEPAM [Concomitant]
     Active Substance: CLONAZEPAM
  5. TRINTELLIX [Concomitant]
     Active Substance: VORTIOXETINE HYDROBROMIDE
  6. CRESTOR [Concomitant]
     Active Substance: ROSUVASTATIN CALCIUM
  7. LISINOPRIL [Concomitant]
     Active Substance: LISINOPRIL
  8. NITROGLYCERIN [Concomitant]
     Active Substance: NITROGLYCERIN
  9. Tizanadine for Fibro [Concomitant]
  10. VALACYCLOVIR [Concomitant]
     Active Substance: VALACYCLOVIR HYDROCHLORIDE
  11. B12 [Concomitant]
  12. Women^s multivitamins [Concomitant]
  13. D-Mannose for bladder health [Concomitant]
  14. MELATONIN [Concomitant]
     Active Substance: MELATONIN
  15. TYLENOL [Concomitant]
     Active Substance: ACETAMINOPHEN
  16. MAGNESIUM CHLORIDE [Concomitant]
     Active Substance: MAGNESIUM CHLORIDE
  17. pro and pri-biototics [Concomitant]

REACTIONS (44)
  - Tendon discomfort [None]
  - Limb discomfort [None]
  - Muscular weakness [None]
  - Gait disturbance [None]
  - Gait disturbance [None]
  - Pain in extremity [None]
  - Motor dysfunction [None]
  - Activities of daily living assessment [None]
  - Insomnia [None]
  - Decreased appetite [None]
  - Dyspnoea [None]
  - Fatigue [None]
  - Antinuclear antibody positive [None]
  - Joint arthroplasty [None]
  - Muscle spasms [None]
  - Foot deformity [None]
  - Arthralgia [None]
  - Tendon disorder [None]
  - Arthritis [None]
  - Bursa injury [None]
  - Procedural complication [None]
  - Knee operation [None]
  - Muscle rupture [None]
  - Tendonitis [None]
  - Panic attack [None]
  - Arrhythmia [None]
  - Palpitations [None]
  - Neuropathy peripheral [None]
  - Alopecia [None]
  - Arthralgia [None]
  - Impaired healing [None]
  - Gastrointestinal infection [None]
  - Spinal fusion surgery [None]
  - Cystocele [None]
  - Toxicity to various agents [None]
  - Diplopia [None]
  - Vision blurred [None]
  - Photopsia [None]
  - Memory impairment [None]
  - Headache [None]
  - Lymphadenopathy [None]
  - Ear disorder [None]
  - Impaired work ability [None]
  - Quality of life decreased [None]

NARRATIVE: CASE EVENT DATE: 20150619
